FAERS Safety Report 17858014 (Version 1)
Quarter: 2020Q2

REPORT INFORMATION
  Report Type: Report from Study
  Country: CA (occurrence: CA)
  Receive Date: 20200604
  Receipt Date: 20200604
  Transmission Date: 20200714
  Serious: Yes (Hospitalization, Other)
  Sender: FDA-Public Use
  Company Number: CA-ASTRAZENECA-2020SE64879

PATIENT
  Sex: Male

DRUGS (4)
  1. HYDROMORPHONE [Concomitant]
     Active Substance: HYDROMORPHONE
     Indication: PAIN
  2. CALQUENCE [Suspect]
     Active Substance: ACALABRUTINIB
     Indication: MANTLE CELL LYMPHOMA
     Route: 048
     Dates: start: 20200328
  3. DULOXETINE. [Concomitant]
     Active Substance: DULOXETINE
  4. METOCLOPRAMIDE. [Concomitant]
     Active Substance: METOCLOPRAMIDE

REACTIONS (2)
  - Pneumonia aspiration [Recovering/Resolving]
  - Pulmonary thrombosis [Recovering/Resolving]
